FAERS Safety Report 5036862-7 (Version None)
Quarter: 2006Q2

REPORT INFORMATION
  Report Type: 
  Country: None (occurrence: None)
  Receive Date: 20060622
  Receipt Date: 20060609
  Transmission Date: 20061013
  Serious: Yes (Other)
  Sender: FDA-Public Use
  Company Number: 2006070465

PATIENT
  Age: 50 Year
  Sex: Male
  Weight: 95.2554 kg

DRUGS (4)
  1. VIAGRA [Suspect]
     Indication: ERECTILE DYSFUNCTION
     Dosage: 25 MG ORAL
     Route: 048
     Dates: start: 20060201
  2. CIALIS [Suspect]
     Indication: ILL-DEFINED DISORDER
  3. METFORMIN [Concomitant]
  4. NORVASC [Concomitant]

REACTIONS (2)
  - HICCUPS [None]
  - RETINAL VEIN OCCLUSION [None]
